FAERS Safety Report 7265197-7 (Version None)
Quarter: 2011Q1

REPORT INFORMATION
  Report Type: 
  Country: None (occurrence: None)
  Receive Date: 20110131
  Receipt Date: 20110127
  Transmission Date: 20110831
  Serious: Yes (Other)
  Sender: FDA-Public Use
  Company Number: US-AMGEN-USASP2011005299

PATIENT
  Age: 77 Year
  Sex: Female

DRUGS (5)
  1. NPLATE [Suspect]
     Indication: IDIOPATHIC THROMBOCYTOPENIC PURPURA
     Dates: start: 20100201
  2. POTASSIUM [Concomitant]
  3. GLIPIZIDE [Concomitant]
  4. LISINOPRIL AND HYDROCHLOROTHIAZIDE [Concomitant]
  5. TOPROL-XL [Concomitant]

REACTIONS (2)
  - PLATELET COUNT DECREASED [None]
  - TREATMENT NONCOMPLIANCE [None]
